FAERS Safety Report 17115891 (Version 1)
Quarter: 2019Q4

REPORT INFORMATION
  Report Type: Spontaneous
  Country: US (occurrence: US)
  Receive Date: 20191204
  Receipt Date: 20191204
  Transmission Date: 20200122
  Serious: No
  Sender: FDA-Public Use
  Company Number: None

PATIENT
  Age: 63 Year
  Sex: Male

DRUGS (8)
  1. TAMSULOSIN 0.4MG [Concomitant]
     Active Substance: TAMSULOSIN
  2. LISINOPRIL 2.5 [Concomitant]
  3. VITAMIN D3 2000 UNITS [Concomitant]
  4. CRANBERRY 400MG [Concomitant]
  5. REVLIMID [Suspect]
     Active Substance: LENALIDOMIDE
     Indication: PLASMA CELL MYELOMA
     Route: 048
     Dates: start: 20190909, end: 20191125
  6. DEXAMETHASONE 4MG [Concomitant]
     Active Substance: DEXAMETHASONE
  7. GLIPIZIDE 5MG [Concomitant]
     Active Substance: GLIPIZIDE
  8. METFORMIN [Concomitant]
     Active Substance: METFORMIN HYDROCHLORIDE

REACTIONS (2)
  - Diarrhoea [None]
  - Therapy cessation [None]

NARRATIVE: CASE EVENT DATE: 20191104
